FAERS Safety Report 19831845 (Version 1)
Quarter: 2021Q3

REPORT INFORMATION
  Report Type: Spontaneous
  Country: PL (occurrence: PL)
  Receive Date: 20210915
  Receipt Date: 20210915
  Transmission Date: 20211014
  Serious: Yes (Hospitalization, Other)
  Sender: FDA-Public Use
  Company Number: PL-IPSEN BIOPHARMACEUTICALS, INC.-2021-21544

PATIENT
  Sex: Female

DRUGS (2)
  1. SOMATULINE AUTOGEL [Suspect]
     Active Substance: LANREOTIDE ACETATE
     Indication: NEUROENDOCRINE CARCINOMA METASTATIC
     Route: 065
     Dates: start: 20190716
  2. SOMATULINE AUTOGEL [Suspect]
     Active Substance: LANREOTIDE ACETATE
     Dosage: DOSE NOT REPORTED
     Route: 065
     Dates: start: 201908

REACTIONS (10)
  - Injection site pain [Recovered/Resolved]
  - Laparotomy [Unknown]
  - Papule [Recovered/Resolved]
  - Disease progression [Unknown]
  - Biliary dilatation [Unknown]
  - Metastases to abdominal cavity [Unknown]
  - Gastrointestinal wall thickening [Unknown]
  - Metastases to liver [Unknown]
  - Local reaction [Recovered/Resolved]
  - Ascites [Unknown]

NARRATIVE: CASE EVENT DATE: 2019
